FAERS Safety Report 25044929 (Version 1)
Quarter: 2025Q1

REPORT INFORMATION
  Report Type: Spontaneous
  Country: FR (occurrence: FR)
  Receive Date: 20250306
  Receipt Date: 20250306
  Transmission Date: 20250409
  Serious: Yes (Other)
  Sender: AUROBINDO
  Company Number: FR-AFSSAPS-NT2025000098

PATIENT
  Age: 39 Year
  Sex: Female
  Weight: 105 kg

DRUGS (3)
  1. NIFEDIPINE [Suspect]
     Active Substance: NIFEDIPINE
     Indication: Hypertension
     Dosage: 30 MILLIGRAM, ONCE A DAY (1 LE MATIN)
     Route: 048
  2. ALDOMET [Suspect]
     Active Substance: METHYLDOPA
     Indication: Hypertension
     Dosage: 2000 MILLIGRAM, ONCE A DAY (2 LE MATIN ET 2 LE SOIR)
     Route: 048
  3. TRANDATE [Suspect]
     Active Substance: LABETALOL HYDROCHLORIDE
     Indication: Hypertension
     Dosage: 400 MILLIGRAM, ONCE A DAY (1LE MATIN ET 1 LE SOIR)
     Route: 048

REACTIONS (1)
  - Abortion induced [Recovered/Resolved with Sequelae]

NARRATIVE: CASE EVENT DATE: 20231026
